FAERS Safety Report 21695762 (Version 1)
Quarter: 2022Q4

REPORT INFORMATION
  Report Type: Spontaneous
  Country: US (occurrence: None)
  Receive Date: 20221206
  Receipt Date: 20221206
  Transmission Date: 20230113
  Serious: No
  Sender: FDA-Public Use
  Company Number: None

PATIENT
  Age: 52 Year
  Sex: Female

DRUGS (1)
  1. AUBAGIO [Suspect]
     Active Substance: TERIFLUNOMIDE
     Dosage: 14MG DAILY ORAL?
     Route: 048
     Dates: start: 202110

REACTIONS (2)
  - Chest pain [None]
  - Gastric disorder [None]

NARRATIVE: CASE EVENT DATE: 20221206
